FAERS Safety Report 5148462-9 (Version None)
Quarter: 2006Q4

REPORT INFORMATION
  Report Type: 
  Country: None (occurrence: None)
  Receive Date: 20061110
  Receipt Date: 20061024
  Transmission Date: 20070319
  Serious: Yes (Hospitalization)
  Sender: FDA-Public Use
  Company Number: DE-MERCK-0610DEU00090

PATIENT
  Age: 74 Year
  Sex: Male

DRUGS (4)
  1. TIMOPTIC [Suspect]
     Route: 047
     Dates: end: 20060101
  2. CORTISONE ACETATE [Concomitant]
     Route: 048
  3. TERBINAFINE [Concomitant]
     Route: 065
  4. [THERAPY UNSPECIFIED] [Concomitant]
     Route: 065

REACTIONS (1)
  - SUDDEN HEARING LOSS [None]
